FAERS Safety Report 26133700 (Version 1)
Quarter: 2025Q4

REPORT INFORMATION
  Report Type: Spontaneous
  Country: JP (occurrence: JP)
  Receive Date: 20251209
  Receipt Date: 20251209
  Transmission Date: 20260117
  Serious: Yes (Other)
  Sender: MERCK SHARP & DOHME LLC
  Company Number: JP-009507513-2358276

PATIENT
  Age: 1 Day

DRUGS (5)
  1. SOTATERCEPT [Suspect]
     Active Substance: SOTATERCEPT
     Dosage: EVERY 3 WEEKS
     Route: 064
     Dates: start: 20250901
  2. EPOPROSTENOL [Concomitant]
     Active Substance: EPOPROSTENOL
     Dosage: 4 NG/KG/ML
     Route: 064
  3. MACITENTAN [Concomitant]
     Active Substance: MACITENTAN
     Route: 064
  4. SILDENAFIL [Concomitant]
     Active Substance: SILDENAFIL
     Route: 064
  5. TREPROSTINIL [Concomitant]
     Active Substance: TREPROSTINIL
     Dosage: 4 TIMES DAILY, 3 INHALATIONS ONCE
     Route: 064

REACTIONS (1)
  - Premature baby [Unknown]

NARRATIVE: CASE EVENT DATE: 20250903
